FAERS Safety Report 17686992 (Version 2)
Quarter: 2020Q2

REPORT INFORMATION
  Report Type: Other
  Country: IT (occurrence: IT)
  Receive Date: 20200421
  Receipt Date: 20200508
  Transmission Date: 20200714
  Serious: Yes (Life-Threatening, Hospitalization, Other)
  Sender: FDA-Public Use
  Company Number: IT-APOTEX-2020AP010108

PATIENT
  Age: 48 Year
  Sex: Male

DRUGS (9)
  1. OLMESARTAN MEDOXOMIL. [Suspect]
     Active Substance: OLMESARTAN MEDOXOMIL
     Indication: DRUG ABUSE
     Dosage: UNK, IN TOTAL
     Route: 048
     Dates: start: 20200321, end: 20200321
  2. PAROXETINE. [Concomitant]
     Active Substance: PAROXETINE
     Indication: BIPOLAR DISORDER
     Dosage: 20 MG, UNK
     Route: 048
  3. PAROXETINE HYDROCHLORIDE. [Suspect]
     Active Substance: PAROXETINE HYDROCHLORIDE
     Indication: DRUG ABUSE
     Dosage: 560 MG, QD (IN TOTAL SINGLE DOSE
     Route: 048
     Dates: start: 20200321, end: 20200321
  4. DOXAZOSIN [Suspect]
     Active Substance: DOXAZOSIN MESYLATE
     Indication: DRUG ABUSE
     Dosage: 60 MG, QD (IN TOTAL 60 MG SINGLE DOSE)
     Route: 048
     Dates: start: 20200321, end: 20200321
  5. OLANZAPINE. [Concomitant]
     Active Substance: OLANZAPINE
     Indication: BIPOLAR DISORDER
     Dosage: 5 MG, UNK
     Route: 048
  6. IDROCLOROTIAZIDE [Suspect]
     Active Substance: HYDROCHLOROTHIAZIDE
     Indication: DRUG ABUSE
     Dosage: UNK IN TOTAL
     Route: 048
     Dates: start: 20200321, end: 20200321
  7. HYDROCHLOROTHIAZIDE W/OLMESARTAN MEDOXOMIL [Suspect]
     Active Substance: HYDROCHLOROTHIAZIDE\OLMESARTAN MEDOXOMIL
     Indication: DRUG ABUSE
     Dosage: 28 DF, QD (IN TOTAL SINGLE DOSE 28 DOSAGE)
     Route: 048
     Dates: start: 20200321, end: 20200321
  8. VENLAFAXINE HYDROCHLORIDE. [Suspect]
     Active Substance: VENLAFAXINE HYDROCHLORIDE
     Indication: DRUG ABUSE
     Dosage: 1 G, QD (IN TOTAL SINGLE DOSE 1 G DAILY)
     Route: 048
     Dates: start: 20200321, end: 20200321
  9. OLANZAPINE. [Suspect]
     Active Substance: OLANZAPINE
     Indication: DRUG ABUSE
     Dosage: 140 MG, QD
     Route: 065
     Dates: start: 20200321, end: 20200321

REACTIONS (4)
  - Drug abuse [Recovering/Resolving]
  - Bundle branch block [Recovering/Resolving]
  - Sopor [Recovering/Resolving]
  - Intentional self-injury [Recovering/Resolving]

NARRATIVE: CASE EVENT DATE: 20200321
